FAERS Safety Report 16749699 (Version 6)
Quarter: 2020Q2

REPORT INFORMATION
  Report Type: Spontaneous
  Country: DE (occurrence: DE)
  Receive Date: 20190828
  Receipt Date: 20200630
  Transmission Date: 20200713
  Serious: Yes (Other)
  Sender: FDA-Public Use
  Company Number: PHHY2019DE192163

PATIENT
  Sex: Female

DRUGS (25)
  1. SILDENAFIL CITRATE. [Suspect]
     Active Substance: SILDENAFIL CITRATE
     Indication: PULMONARY HYPERTENSION
     Dosage: 60 MG, QD
     Route: 065
  2. AMBRISENTAN [Suspect]
     Active Substance: AMBRISENTAN
     Dosage: 1 DF, QD
     Route: 065
  3. VOLIBRIS [Suspect]
     Active Substance: AMBRISENTAN
     Indication: PULMONARY HYPERTENSION
     Dosage: 30 MG, QD
     Route: 048
  4. SPASMOLYT [Suspect]
     Active Substance: TROSPIUM CHLORIDE
     Dosage: 1 DF, QD
     Route: 065
  5. SILDENAFIL. [Suspect]
     Active Substance: SILDENAFIL
     Indication: PULMONARY HYPERTENSION
     Dosage: 60 MG, QD
     Route: 065
  6. OMEPRAZOLE. [Suspect]
     Active Substance: OMEPRAZOLE
     Indication: PRODUCT USED FOR UNKNOWN INDICATION
     Dosage: 2 DF, QD 1 DOSAGE FORM, BID (1-0-1)
     Route: 048
  7. OMEPRAZOLE. [Suspect]
     Active Substance: OMEPRAZOLE
     Dosage: 40 MG, QD (20 MG, BID)
     Route: 048
  8. RAMIPRIL. [Suspect]
     Active Substance: RAMIPRIL
     Indication: PRODUCT USED FOR UNKNOWN INDICATION
     Dosage: 5 MG, QD
     Route: 048
  9. APIXABAN [Suspect]
     Active Substance: APIXABAN
     Indication: CEREBROVASCULAR ACCIDENT PROPHYLAXIS
     Dosage: 5 MG, QD (2.5 MG, BID)
     Route: 065
  10. ELIQUIS [Concomitant]
     Active Substance: APIXABAN
     Dosage: 2.5 MG, BID
     Route: 065
  11. APIXABAN [Suspect]
     Active Substance: APIXABAN
     Dosage: 2 DF, QD
     Route: 065
  12. PREGABALIN. [Suspect]
     Active Substance: PREGABALIN
     Dosage: 300 MG, QD (100 MILLIGRAM, TID)
     Route: 065
  13. VOLIBRIS [Suspect]
     Active Substance: AMBRISENTAN
     Indication: GOUT
     Dosage: 1 DF, QD
     Route: 048
  14. SPASMOLYT [Suspect]
     Active Substance: TROSPIUM CHLORIDE
     Indication: PRODUCT USED FOR UNKNOWN INDICATION
     Dosage: 15 MG, QD
     Route: 065
  15. SPASMOLYT [Suspect]
     Active Substance: TROSPIUM CHLORIDE
     Dosage: 30 MG, QD
     Route: 065
  16. LYRICA [Suspect]
     Active Substance: PREGABALIN
     Indication: PRODUCT USED FOR UNKNOWN INDICATION
     Dosage: 300 MG, QD (100 MG, TID)
     Route: 065
  17. PREGABALIN. [Suspect]
     Active Substance: PREGABALIN
     Indication: PRODUCT USED FOR UNKNOWN INDICATION
     Dosage: 3 DF, QD (1 DOSAGE FORM)
     Route: 065
  18. ROACTEMRA [Suspect]
     Active Substance: TOCILIZUMAB
     Dosage: 162 MILLIGRAM, QWK
     Route: 058
     Dates: start: 20190118, end: 2019
  19. ELIQUIS [Concomitant]
     Active Substance: APIXABAN
     Indication: CEREBROVASCULAR ACCIDENT PROPHYLAXIS
     Dosage: 2 DF, QD 1 DOSAGE FORM, BID (1-0-1)
     Route: 065
  20. ROACTEMRA [Suspect]
     Active Substance: TOCILIZUMAB
     Dosage: 162 MG, QW
     Route: 065
     Dates: start: 20170427
  21. QUENSYL [Suspect]
     Active Substance: HYDROXYCHLOROQUINE
     Indication: PRODUCT USED FOR UNKNOWN INDICATION
     Dosage: 80 MG, BID (40 MG, BID)
     Route: 065
  22. AMBRISENTAN [Suspect]
     Active Substance: AMBRISENTAN
     Indication: PRODUCT USED FOR UNKNOWN INDICATION
     Dosage: 30 MG, QD
     Route: 065
  23. RAMIPRIL. [Suspect]
     Active Substance: RAMIPRIL
     Dosage: 2 DF, QD (1 DOSAGE FORM, BID)
     Route: 048
  24. ROACTEMRA [Suspect]
     Active Substance: TOCILIZUMAB
     Indication: RHEUMATOID ARTHRITIS
     Dosage: 162 MILLIGRAM, QWK
     Route: 058
     Dates: start: 20150427
  25. QUENSYL [Suspect]
     Active Substance: HYDROXYCHLOROQUINE
     Dosage: 40 MG, QD (20 MG, BID)
     Route: 065

REACTIONS (12)
  - Visual impairment [Not Recovered/Not Resolved]
  - Ligament sprain [Recovering/Resolving]
  - Paraesthesia [Recovered/Resolved]
  - Arthralgia [Not Recovered/Not Resolved]
  - Peripheral coldness [Recovered/Resolved]
  - Pulmonary hypertension [Not Recovered/Not Resolved]
  - Arthropathy [Unknown]
  - Pain in extremity [Recovered/Resolved]
  - Pulmonary hypertension [Recovering/Resolving]
  - Oedema peripheral [Recovered/Resolved]
  - Nasopharyngitis [Recovered/Resolved]
  - Therapeutic product effect incomplete [Unknown]

NARRATIVE: CASE EVENT DATE: 2018
